FAERS Safety Report 14836372 (Version 1)
Quarter: 2018Q2

REPORT INFORMATION
  Report Type: Other
  Country: CA (occurrence: CA)
  Receive Date: 20180502
  Receipt Date: 20180502
  Transmission Date: 20180711
  Serious: Yes (Death, Other)
  Sender: FDA-Public Use
  Company Number: CA-APOTEX-2017AP010799

PATIENT
  Age: 33 Year
  Sex: Female

DRUGS (14)
  1. GEMCITABINE [Suspect]
     Active Substance: GEMCITABINE\GEMCITABINE HYDROCHLORIDE
     Indication: DRUG EFFECT INCOMPLETE
  2. CISPLATIN. [Suspect]
     Active Substance: CISPLATIN
     Indication: CHORIOCARCINOMA
     Route: 065
  3. TAXOTERE [Concomitant]
     Active Substance: DOCETAXEL
     Indication: INVASIVE DUCTAL BREAST CARCINOMA
     Route: 065
  4. DOXORUBICIN [Concomitant]
     Active Substance: DOXORUBICIN
     Indication: INVASIVE DUCTAL BREAST CARCINOMA
     Dosage: 35 MG/M2, UNK
     Route: 065
  5. GEMCITABINE [Suspect]
     Active Substance: GEMCITABINE\GEMCITABINE HYDROCHLORIDE
     Indication: CHORIOCARCINOMA
     Route: 065
  6. PEGYLATED LIPOSOMAL DOXORUBICIN HYDROCHLORIDE [Suspect]
     Active Substance: DOXORUBICIN HYDROCHLORIDE
     Indication: CHORIOCARCINOMA
     Dosage: 35 MG/M2, CYCLICAL
     Route: 065
  7. TAXOL [Suspect]
     Active Substance: PACLITAXEL
     Indication: CHORIOCARCINOMA
     Route: 065
  8. TRASTUZUMAB. [Concomitant]
     Active Substance: TRASTUZUMAB
     Indication: INVASIVE DUCTAL BREAST CARCINOMA
     Route: 065
  9. CYCLOPHOSPHAMIDE. [Suspect]
     Active Substance: CYCLOPHOSPHAMIDE
     Indication: CHORIOCARCINOMA
     Route: 065
  10. ETOPOSIDE. [Suspect]
     Active Substance: ETOPOSIDE
     Indication: CHORIOCARCINOMA
     Dosage: CYCLICAL
     Route: 065
  11. TAXOL [Suspect]
     Active Substance: PACLITAXEL
     Indication: DRUG EFFECT INCOMPLETE
  12. VINCRISTINE SULFATE. [Suspect]
     Active Substance: VINCRISTINE SULFATE
     Indication: CHORIOCARCINOMA
     Dosage: CYCLICAL
     Route: 065
  13. DACTINOMYCIN [Suspect]
     Active Substance: DACTINOMYCIN
     Indication: CHORIOCARCINOMA
     Route: 065
  14. METHOTREXATE SODIUM. [Suspect]
     Active Substance: METHOTREXATE SODIUM
     Indication: CHORIOCARCINOMA
     Dosage: CYCLICAL
     Route: 065

REACTIONS (5)
  - Drug resistance [Unknown]
  - Disease progression [Unknown]
  - Second primary malignancy [Fatal]
  - Acute myeloid leukaemia [Fatal]
  - Drug ineffective [Unknown]
